FAERS Safety Report 17314308 (Version 8)
Quarter: 2023Q1

REPORT INFORMATION
  Report Type: Report from Study
  Country: MX (occurrence: None)
  Receive Date: 20200124
  Receipt Date: 20230131
  Transmission Date: 20230418
  Serious: Yes (Hospitalization)
  Sender: FDA-Public Use
  Company Number: MX-ROCHE-2519288

PATIENT
  Age: 69 Year
  Sex: Female
  Weight: 86 kg

DRUGS (8)
  1. ATEZOLIZUMAB [Suspect]
     Active Substance: ATEZOLIZUMAB
     Indication: Triple negative breast cancer
     Dosage: DATE OF MOST RECENT DOSE OF ATEZOLIZUMAB PRIOR TO AE/SAE ONSET: 23/DEC/2019
     Route: 042
     Dates: start: 20190905
  2. PACLITAXEL [Suspect]
     Active Substance: PACLITAXEL
     Indication: Triple negative breast cancer
     Dosage: DATE OF MOST RECENT DOSE OF PACLITAXEL PRIOR TO AE AND SAE ONSET: 28/NOV/2019?DOSE OF LAST PACLITAXE
     Route: 042
     Dates: start: 20190905
  3. DOXORUBICIN [Suspect]
     Active Substance: DOXORUBICIN
     Indication: Triple negative breast cancer
     Dosage: DATE OF MOST RECENT DOSE OF DOXORUBICIN PRIOR TO AE AND SAE ONSET : 23/DEC/2019?DOSE OF LAST DOXORUB
     Route: 042
     Dates: start: 20191205
  4. CYCLOPHOSPHAMIDE [Suspect]
     Active Substance: CYCLOPHOSPHAMIDE
     Indication: Triple negative breast cancer
     Dosage: DATE OF MOST RECENT DOSE OF CYCLOPHOSPHAMIDE PRIOR TO AE AND SAE ONSET: 23/DEC/2019?DOSE OF LAST CYC
     Route: 042
     Dates: start: 20191205
  5. FILGRASTIM [Suspect]
     Active Substance: FILGRASTIM
     Indication: Triple negative breast cancer
     Dosage: CYCLE 4?VISIT 1
     Route: 058
     Dates: start: 20191209, end: 20191211
  6. FILGRASTIM [Suspect]
     Active Substance: FILGRASTIM
     Dosage: CYCLE 4?VISIT 2
     Route: 058
     Dates: start: 20191226, end: 20191230
  7. FILGRASTIM [Suspect]
     Active Substance: FILGRASTIM
     Dosage: CYCLE 5?VISIT 1
     Route: 058
     Dates: start: 20200218, end: 20200222
  8. FILGRASTIM [Suspect]
     Active Substance: FILGRASTIM
     Dosage: CYCLE 5?VISIT 2
     Route: 058
     Dates: start: 20200305, end: 20200309

REACTIONS (2)
  - Ejection fraction decreased [Recovered/Resolved]
  - Atrial fibrillation [Not Recovered/Not Resolved]

NARRATIVE: CASE EVENT DATE: 20200102
